FAERS Safety Report 9461741 (Version 1)
Quarter: 2013Q3

REPORT INFORMATION
  Report Type: Spontaneous
  Country: IT (occurrence: None)
  Receive Date: 20130813
  Receipt Date: 20130813
  Transmission Date: 20140515
  Serious: Yes (Other)
  Sender: FDA-Public Use
  Company Number: 2013AP007122

PATIENT
  Age: 85 Year
  Sex: Female

DRUGS (2)
  1. ZOLPIDEM [Suspect]
     Route: 048
     Dates: start: 20130422, end: 20130521
  2. QUETIAPINE FUMARATE [Suspect]
     Route: 048
     Dates: start: 20130422, end: 20130521

REACTIONS (3)
  - Hallucination, auditory [None]
  - Headache [None]
  - Sopor [None]
